FAERS Safety Report 26085888 (Version 1)
Quarter: 2025Q4

REPORT INFORMATION
  Report Type: Spontaneous
  Country: JP (occurrence: JP)
  Receive Date: 20251125
  Receipt Date: 20251125
  Transmission Date: 20260118
  Serious: Yes (Hospitalization, Other)
  Sender: AZURITY PHARMACEUTICALS
  Company Number: JP-AZURITY PHARMACEUTICALS, INC.-AZR202511-003438

PATIENT
  Age: 70 Year
  Sex: Male
  Weight: 72 kg

DRUGS (3)
  1. METHYLPREDNISOLONE ACETATE [Suspect]
     Active Substance: METHYLPREDNISOLONE ACETATE
     Indication: Anaphylactic reaction
     Dosage: 60 MILLIGRAM, UNK
     Route: 065
  2. PIPERACILLIN SODIUM\TAZOBACTAM SODIUM [Suspect]
     Active Substance: PIPERACILLIN SODIUM\TAZOBACTAM SODIUM
     Indication: Pneumonia bacterial
     Dosage: 4.5 GRAM, SINGLE
     Route: 042
  3. Fluticasone-formoterol combination [Concomitant]
     Indication: Asthma-chronic obstructive pulmonary disease overlap syndrome
     Dosage: UNK
     Route: 065

REACTIONS (3)
  - Electrocardiogram ST segment elevation [Recovered/Resolved]
  - Anaphylactic shock [Recovered/Resolved]
  - Product use in unapproved indication [Unknown]
